FAERS Safety Report 14268098 (Version 3)
Quarter: 2018Q1

REPORT INFORMATION
  Report Type: Spontaneous
  Country: JP (occurrence: JP)
  Receive Date: 20171211
  Receipt Date: 20180122
  Transmission Date: 20180508
  Serious: Yes (Life-Threatening, Hospitalization, Other)
  Sender: FDA-Public Use
  Company Number: JP-ROCHE-2038003

PATIENT
  Age: 78 Year
  Sex: Male
  Weight: 97 kg

DRUGS (10)
  1. ACTEMRA [Suspect]
     Active Substance: TOCILIZUMAB
     Route: 041
     Dates: start: 20131225
  2. ACTEMRA [Suspect]
     Active Substance: TOCILIZUMAB
     Route: 041
     Dates: start: 20160507, end: 20170418
  3. ACTEMRA [Suspect]
     Active Substance: TOCILIZUMAB
     Indication: RHEUMATOID ARTHRITIS
     Route: 041
     Dates: start: 20130423, end: 2013
  4. ACTEMRA [Suspect]
     Active Substance: TOCILIZUMAB
     Route: 041
     Dates: start: 20130828, end: 2013
  5. ACTEMRA [Suspect]
     Active Substance: TOCILIZUMAB
     Route: 041
     Dates: start: 20140409
  6. RHEUMATREX [Concomitant]
     Active Substance: METHOTREXATE SODIUM
     Route: 065
     Dates: start: 2017, end: 20171207
  7. RHEUMATREX [Concomitant]
     Active Substance: METHOTREXATE SODIUM
     Route: 065
  8. ACTEMRA [Suspect]
     Active Substance: TOCILIZUMAB
     Route: 041
     Dates: start: 20170620, end: 20171031
  9. PREDONINE [Concomitant]
     Active Substance: PREDNISOLONE
     Route: 065
  10. PREDONINE [Concomitant]
     Active Substance: PREDNISOLONE
     Route: 065
     Dates: end: 2017

REACTIONS (5)
  - Gastric ulcer [Unknown]
  - Lumbar spinal stenosis [Not Recovered/Not Resolved]
  - Appendicitis perforated [Not Recovered/Not Resolved]
  - Metastases to lymph nodes [Unknown]
  - Colon cancer [Recovering/Resolving]

NARRATIVE: CASE EVENT DATE: 2017
